FAERS Safety Report 20660751 (Version 2)
Quarter: 2022Q2

REPORT INFORMATION
  Report Type: Spontaneous
  Country: US (occurrence: US)
  Receive Date: 20220331
  Receipt Date: 20220413
  Transmission Date: 20220721
  Serious: Yes (Hospitalization, Other)
  Sender: FDA-Public Use
  Company Number: US-TEVA-2022-US-2021553

PATIENT
  Age: 77 Year
  Sex: Female

DRUGS (6)
  1. PREDNISONE [Suspect]
     Active Substance: PREDNISONE
     Indication: Mononeuropathy multiplex
     Route: 065
  2. IPILIMUMAB [Suspect]
     Active Substance: IPILIMUMAB
     Indication: Melanoma recurrent
     Route: 065
  3. NIVOLUMAB [Suspect]
     Active Substance: NIVOLUMAB
     Indication: Melanoma recurrent
     Route: 065
  4. HUMAN IMMUNOGLOBULIN G [Suspect]
     Active Substance: HUMAN IMMUNOGLOBULIN G
     Indication: Mononeuropathy multiplex
     Dosage: ADDITIONAL COURSES
     Route: 042
  5. HUMAN IMMUNOGLOBULIN G [Suspect]
     Active Substance: HUMAN IMMUNOGLOBULIN G
     Dosage: 2G/KG ADMINISTERED IN TWO DOSES
     Route: 042
  6. METHYLPREDNISOLONE [Concomitant]
     Active Substance: METHYLPREDNISOLONE
     Indication: Mononeuropathy multiplex
     Dosage: FIVE DOSES, 1 GRAM
     Route: 042

REACTIONS (10)
  - Rash [Recovering/Resolving]
  - Hypertransaminasaemia [Recovering/Resolving]
  - Hypophysitis [Recovering/Resolving]
  - Retinopathy [Unknown]
  - Mononeuropathy multiplex [Not Recovered/Not Resolved]
  - Rebound effect [Unknown]
  - Asthenia [Unknown]
  - Neuropathy peripheral [Unknown]
  - Urinary incontinence [Unknown]
  - Constipation [Unknown]
